FAERS Safety Report 23443953 (Version 1)
Quarter: 2024Q1

REPORT INFORMATION
  Report Type: Report from Study
  Country: IT (occurrence: IT)
  Receive Date: 20240125
  Receipt Date: 20240125
  Transmission Date: 20240410
  Serious: Yes (Other)
  Sender: FDA-Public Use
  Company Number: IT-SHIONOGI INC.-2024000084

PATIENT

DRUGS (3)
  1. FETROJA [Suspect]
     Active Substance: CEFIDEROCOL SULFATE TOSYLATE
     Indication: Fasciitis
     Dosage: UNK, EVERY 8 HOUR
     Route: 042
     Dates: start: 202311, end: 202312
  2. AMPICILLIN SODIUM\SULBACTAM SODIUM [Concomitant]
     Active Substance: AMPICILLIN SODIUM\SULBACTAM SODIUM
     Indication: Fasciitis
     Dosage: 9 G, 3
     Route: 042
     Dates: start: 202311, end: 202312
  3. FOSFOMYCIN [Concomitant]
     Active Substance: FOSFOMYCIN
     Indication: Fasciitis
     Dosage: 4 G, 6 HOUR
     Dates: start: 202311, end: 202312

REACTIONS (1)
  - Acute kidney injury [Unknown]

NARRATIVE: CASE EVENT DATE: 20230101
